FAERS Safety Report 17963435 (Version 2)
Quarter: 2020Q3

REPORT INFORMATION
  Report Type: Report from Study
  Country: TH (occurrence: TH)
  Receive Date: 20200630
  Receipt Date: 20200713
  Transmission Date: 20201103
  Serious: Yes (Hospitalization)
  Sender: FDA-Public Use
  Company Number: TH-NOVOPROD-735776

PATIENT
  Age: 23 Month
  Sex: Male
  Weight: 14.1 kg

DRUGS (3)
  1. TUROCTOCOG ALFA PEGOL 2000 IU [Suspect]
     Active Substance: TUROCTOCOG ALFA PEGOL
     Dosage: 2 ML, SINGLE
     Route: 040
     Dates: start: 20200617
  2. TUROCTOCOG ALFA PEGOL 2000 IU [Suspect]
     Active Substance: TUROCTOCOG ALFA PEGOL
     Indication: FACTOR VIII DEFICIENCY
     Dosage: 60.0,U/KG,EVERY 7TH DAY (Q7D)
     Route: 040
     Dates: start: 20200513
  3. TUROCTOCOG ALFA PEGOL 2000 IU [Suspect]
     Active Substance: TUROCTOCOG ALFA PEGOL
     Dosage: CHALLENGE TEST, 60 U/KG
     Dates: start: 20200624

REACTIONS (2)
  - Rash erythematous [Recovered/Resolved]
  - Angioedema [Recovered/Resolved]

NARRATIVE: CASE EVENT DATE: 20200617
